FAERS Safety Report 9473086 (Version 1)
Quarter: 2013Q3

REPORT INFORMATION
  Report Type: Spontaneous
  Country: US (occurrence: US)
  Receive Date: 20130823
  Receipt Date: 20130823
  Transmission Date: 20140515
  Serious: No
  Sender: FDA-Public Use
  Company Number: US-BRISTOL-MYERS SQUIBB COMPANY-17418427

PATIENT
  Age: 32 Year
  Sex: Female
  Weight: 56.23 kg

DRUGS (4)
  1. SPRYCEL [Suspect]
     Indication: CHRONIC MYELOID LEUKAEMIA
     Route: 048
     Dates: start: 20130201
  2. ZOFRAN [Concomitant]
  3. MOTRIN [Concomitant]
  4. LASIX [Concomitant]

REACTIONS (3)
  - Pyrexia [Recovering/Resolving]
  - Nausea [Recovering/Resolving]
  - Chills [Recovering/Resolving]
